FAERS Safety Report 9601808 (Version 1)
Quarter: 2013Q4

REPORT INFORMATION
  Report Type: Spontaneous
  Country: US (occurrence: US)
  Receive Date: 20131007
  Receipt Date: 20131007
  Transmission Date: 20140711
  Serious: Yes (Hospitalization, Other)
  Sender: FDA-Public Use
  Company Number: US-AMGEN-USASP2013069043

PATIENT
  Age: 79 Year
  Sex: Female

DRUGS (1)
  1. PROLIA [Suspect]
     Indication: OSTEOPOROSIS
     Dosage: UNK
     Route: 065

REACTIONS (11)
  - Metabolic acidosis [Unknown]
  - Agitation [Unknown]
  - Nausea [Unknown]
  - Vomiting [Unknown]
  - Renal impairment [Unknown]
  - Renal failure chronic [Unknown]
  - Blood creatinine abnormal [Unknown]
  - Hypocalcaemia [Unknown]
  - Blood albumin abnormal [Unknown]
  - Blood urea abnormal [Unknown]
  - Blood bicarbonate [Unknown]
